FAERS Safety Report 8574190-3 (Version None)
Quarter: 2012Q2

REPORT INFORMATION
  Report Type: 
  Country: None (occurrence: None)
  Receive Date: 20120423
  Receipt Date: 20100310
  Transmission Date: 20120825
  Serious: Yes (Other)
  Sender: FDA-Public Use
  Company Number: PHEH2010US03039

PATIENT
  Sex: Male
  Weight: 61.2 kg

DRUGS (1)
  1. EXJADE [Suspect]
     Dosage: 1250 MG, DAILY, ORAL
     Route: 048

REACTIONS (1)
  - SICKLE CELL ANAEMIA WITH CRISIS [None]
